FAERS Safety Report 7561724-0 (Version None)
Quarter: 2011Q2

REPORT INFORMATION
  Report Type: 
  Country: None (occurrence: None)
  Receive Date: 20110621
  Receipt Date: 20101119
  Transmission Date: 20111010
  Serious: No
  Sender: FDA-Public Use
  Company Number: US-ASTRAZENECA-2010SE55468

PATIENT
  Sex: Female
  Weight: 61.7 kg

DRUGS (4)
  1. TAMOXIFEN CITRATE [Concomitant]
  2. DYNACIRC [Concomitant]
  3. RHINOCORT [Suspect]
     Indication: SEASONAL ALLERGY
     Route: 045
     Dates: start: 20101001, end: 20101101
  4. SYNTHROID [Concomitant]

REACTIONS (9)
  - OROPHARYNGEAL PAIN [None]
  - PHARYNGITIS [None]
  - TONGUE DISORDER [None]
  - GLOSSODYNIA [None]
  - EPISTAXIS [None]
  - NASAL DRYNESS [None]
  - TONGUE INJURY [None]
  - GLOSSITIS [None]
  - NASAL DISCOMFORT [None]
